FAERS Safety Report 6835594-X (Version None)
Quarter: 2010Q2

REPORT INFORMATION
  Report Type: 
  Country: None (occurrence: None)
  Receive Date: 20100520
  Receipt Date: 20090728
  Transmission Date: 20101027
  Serious: Yes (Other)
  Sender: FDA-Public Use
  Company Number: 2006058037

PATIENT
  Age: 65 Year
  Sex: Female
  Weight: 94 kg

DRUGS (14)
  1. PROVERA [Suspect]
     Indication: HORMONE REPLACEMENT THERAPY
     Dosage: 10 MG, ORAL
     Route: 048
     Dates: start: 19900501, end: 19960501
  2. PROVERA [Suspect]
     Indication: MENOPAUSE
     Dosage: 10 MG, ORAL
     Route: 048
     Dates: start: 19900501, end: 19960501
  3. MEDROXYPROGESTERONE ACETATE [Suspect]
     Indication: HORMONE REPLACEMENT THERAPY
     Dosage: ORAL
     Route: 048
     Dates: start: 19910101, end: 20000101
  4. PREMARIN [Suspect]
     Indication: HORMONE REPLACEMENT THERAPY
     Dosage: 0.625 MG
     Dates: start: 19910701, end: 19960501
  5. PREMARIN [Suspect]
     Indication: MENOPAUSE
     Dosage: 0.625 MG
     Dates: start: 19910701, end: 19960501
  6. CYCRIN [Suspect]
     Indication: HORMONE REPLACEMENT THERAPY
     Dosage: 2.5MG + 10MG
     Dates: start: 19941201, end: 19950101
  7. CYCRIN [Suspect]
     Indication: MENOPAUSE
     Dosage: 2.5MG + 10MG
     Dates: start: 19941201, end: 19950101
  8. MEDROXYPROGESTERONE ACETATE [Suspect]
     Indication: HORMONE REPLACEMENT THERAPY
     Dosage: 10 MG
     Dates: start: 19950101, end: 19950101
  9. MEDROXYPROGESTERONE ACETATE [Suspect]
     Indication: MENOPAUSE
     Dosage: 10 MG
     Dates: start: 19950101, end: 19950101
  10. ESTRACE [Suspect]
     Indication: HORMONE REPLACEMENT THERAPY
     Dosage: 1 MG
     Dates: start: 19941201, end: 19951201
  11. ESTRACE [Suspect]
     Indication: MENOPAUSE
     Dosage: 1 MG
     Dates: start: 19941201, end: 19951201
  12. PREMPRO [Suspect]
     Indication: HORMONE REPLACEMENT THERAPY
     Dosage: 0.625/2.5MG
     Dates: start: 19960601, end: 20000501
  13. PREMPRO [Suspect]
     Indication: MENOPAUSE
     Dosage: 0.625/2.5MG
     Dates: start: 19960601, end: 20000501
  14. NORVASC [Concomitant]

REACTIONS (1)
  - BREAST CANCER FEMALE [None]
